FAERS Safety Report 12113464 (Version 2)
Quarter: 2016Q1

REPORT INFORMATION
  Report Type: Spontaneous
  Country: IL (occurrence: IL)
  Receive Date: 20160225
  Receipt Date: 20160304
  Transmission Date: 20160526
  Serious: Yes (Hospitalization, Other)
  Sender: FDA-Public Use
  Company Number: IL-BAUSCH-BL-2016-004513

PATIENT
  Age: 68 Year
  Sex: Male

DRUGS (1)
  1. TIMOLOL MALEATE. [Suspect]
     Active Substance: TIMOLOL MALEATE
     Indication: GLAUCOMA
     Route: 031

REACTIONS (3)
  - Electrocardiogram PR prolongation [Unknown]
  - Sinus bradycardia [Unknown]
  - Syncope [Unknown]
